FAERS Safety Report 18255234 (Version 1)
Quarter: 2020Q3

REPORT INFORMATION
  Report Type: Report from Study
  Country: ES (occurrence: ES)
  Receive Date: 20200911
  Receipt Date: 20200911
  Transmission Date: 20201103
  Serious: Yes (Other)
  Sender: FDA-Public Use
  Company Number: ES-AMGEN-ESPNI2020144885

PATIENT
  Age: 71 Year
  Sex: Male
  Weight: 81.7 kg

DRUGS (5)
  1. 5 FU [Suspect]
     Active Substance: FLUOROURACIL
     Dosage: 4700 MILLIGRAM, Q2WK
     Route: 042
     Dates: start: 20190424, end: 20200803
  2. PANITUMUMAB [Suspect]
     Active Substance: PANITUMUMAB
     Indication: COLORECTAL CANCER
     Dosage: 510 MILLIGRAM, Q2WK
     Route: 042
     Dates: start: 20190424, end: 20200803
  3. OXALIPLATIN. [Suspect]
     Active Substance: OXALIPLATIN
     Indication: COLORECTAL CANCER
     Dosage: 170 MILLIGRAM, Q2WK
     Route: 042
     Dates: start: 20190424, end: 20200803
  4. FOLINIC ACID [Concomitant]
     Active Substance: LEUCOVORIN
     Indication: COLORECTAL CANCER
     Dosage: 780 MILLIGRAM, Q2WK
     Route: 042
     Dates: start: 20190424, end: 20200803
  5. 5 FU [Suspect]
     Active Substance: FLUOROURACIL
     Indication: COLORECTAL CANCER
     Dosage: 780 MILLIGRAM, Q2WK
     Route: 040
     Dates: start: 20190424, end: 20200803

REACTIONS (1)
  - Neutropenia [Recovered/Resolved]

NARRATIVE: CASE EVENT DATE: 20200820
